FAERS Safety Report 20279760 (Version 2)
Quarter: 2022Q1

REPORT INFORMATION
  Report Type: Report from Study
  Country: US (occurrence: US)
  Receive Date: 20220103
  Receipt Date: 20220110
  Transmission Date: 20220423
  Serious: Yes (Other)
  Sender: FDA-Public Use
  Company Number: US-IPSEN Group, Research and Development-2021-33235

PATIENT
  Age: 13 Year
  Sex: Male

DRUGS (4)
  1. INCRELEX [Suspect]
     Active Substance: MECASERMIN
     Indication: Blood test abnormal
     Route: 058
     Dates: start: 201410
  2. INCRELEX [Suspect]
     Active Substance: MECASERMIN
     Indication: Short stature
  3. INCRELEX [Suspect]
     Active Substance: MECASERMIN
     Indication: Off label use
  4. INCRELEX [Suspect]
     Active Substance: MECASERMIN
     Indication: Primary insulin like growth factor-1 deficiency

REACTIONS (3)
  - Blood glucose decreased [Recovered/Resolved]
  - Product dose omission issue [Unknown]
  - Off label use [Unknown]
